FAERS Safety Report 4444663-3 (Version None)
Quarter: 2004Q3

REPORT INFORMATION
  Report Type: 
  Country: None (occurrence: None)
  Receive Date: 20040907
  Receipt Date: 20040824
  Transmission Date: 20050211
  Serious: Yes (Other)
  Sender: FDA-Public Use
  Company Number: PHBS2004BE11344

PATIENT
  Age: 67 Year
  Sex: Female

DRUGS (1)
  1. VISUDYNE [Suspect]
     Indication: MACULAR DEGENERATION
     Dates: start: 20040101, end: 20040101

REACTIONS (2)
  - EYE OPERATION COMPLICATION [None]
  - RETINAL HAEMORRHAGE [None]
